FAERS Safety Report 8163423-3 (Version None)
Quarter: 2012Q1

REPORT INFORMATION
  Report Type: 
  Country: None (occurrence: None)
  Receive Date: 20120224
  Receipt Date: 20120221
  Transmission Date: 20120608
  Serious: Yes (Hospitalization)
  Sender: FDA-Public Use
  Company Number: US-BAYER-2012-017550

PATIENT
  Age: 49 Year
  Sex: Female

DRUGS (1)
  1. MAGNEVIST [Suspect]
     Indication: NUCLEAR MAGNETIC RESONANCE IMAGING BRAIN
     Dosage: 15 ML, ONCE
     Route: 042
     Dates: start: 20120216, end: 20120216

REACTIONS (6)
  - RESPIRATORY DISTRESS [None]
  - ERYTHEMA [None]
  - THROAT IRRITATION [None]
  - OEDEMA [None]
  - EYE SWELLING [None]
  - THROAT TIGHTNESS [None]
